FAERS Safety Report 8274645-5 (Version None)
Quarter: 2012Q2

REPORT INFORMATION
  Report Type: 
  Country: None (occurrence: None)
  Receive Date: 20120411
  Receipt Date: 20120402
  Transmission Date: 20120825
  Serious: Yes (Hospitalization)
  Sender: FDA-Public Use
  Company Number: JP-GLAXOSMITHKLINE-B0656531A

PATIENT
  Sex: Male

DRUGS (4)
  1. PHENYTOIN SODIUM CAP [Concomitant]
     Route: 048
  2. LAMICTAL [Suspect]
     Dosage: 100MG PER DAY
     Route: 048
     Dates: start: 20100424, end: 20100508
  3. TEGRETOL [Concomitant]
     Route: 048
  4. LAMICTAL [Suspect]
     Indication: EPILEPSY
     Dosage: 50MG PER DAY
     Route: 048
     Dates: start: 20100326, end: 20100423

REACTIONS (12)
  - HEPATIC FUNCTION ABNORMAL [None]
  - PURPURA [None]
  - DECREASED APPETITE [None]
  - EOSINOPHIL COUNT INCREASED [None]
  - DRUG ERUPTION [None]
  - HYPOPHAGIA [None]
  - PAPULE [None]
  - ERYTHEMA [None]
  - RASH [None]
  - RASH PUSTULAR [None]
  - PYREXIA [None]
  - WHITE BLOOD CELL COUNT INCREASED [None]
